FAERS Safety Report 6610154-4 (Version None)
Quarter: 2010Q1

REPORT INFORMATION
  Report Type: 
  Country: None (occurrence: None)
  Receive Date: 20100302
  Receipt Date: 20100217
  Transmission Date: 20100710
  Serious: Yes (Other)
  Sender: FDA-Public Use
  Company Number: US-PFIZER INC-2010024513

PATIENT
  Sex: Female
  Weight: 79.365 kg

DRUGS (1)
  1. ZOLOFT [Suspect]
     Indication: POSTPARTUM DEPRESSION
     Dosage: UNK
     Dates: start: 20090101, end: 20100214

REACTIONS (5)
  - DIZZINESS [None]
  - HEADACHE [None]
  - PALPITATIONS [None]
  - SENSATION OF BLOOD FLOW [None]
  - VITAMIN D DECREASED [None]
